FAERS Safety Report 6756276-9 (Version None)
Quarter: 2010Q2

REPORT INFORMATION
  Report Type: 
  Country: None (occurrence: None)
  Receive Date: 20100604
  Receipt Date: 20100525
  Transmission Date: 20101027
  Serious: Yes (Other)
  Sender: FDA-Public Use
  Company Number: NO-ROCHE-679231

PATIENT
  Sex: Male
  Weight: 0.8 kg

DRUGS (2)
  1. TAMIFLU [Suspect]
     Dosage: DOSAGE REGIMEN REPORTED AS 1+1.
     Dates: start: 20091113
  2. PANDEMRIX [Suspect]
     Dosage: DOSE REPORTED AS DOSE FORM. DOSAGE REGIMEN REPORTED AS 1.
     Dates: start: 20091105

REACTIONS (1)
  - STILLBIRTH [None]
